FAERS Safety Report 18667549 (Version 1)
Quarter: 2020Q4

REPORT INFORMATION
  Report Type: Report from Study
  Country: None (occurrence: PT)
  Receive Date: 20201228
  Receipt Date: 20201228
  Transmission Date: 20210114
  Serious: Yes (Other)
  Sender: FDA-Public Use
  Company Number: PT-ABBVIE-20K-130-3705956-00

PATIENT
  Age: 56 Year
  Sex: Male

DRUGS (9)
  1. DOMPERIDONE [Concomitant]
     Active Substance: DOMPERIDONE
     Indication: PRODUCT USED FOR UNKNOWN INDICATION
     Dosage: START DATE: BEFORE DUODOPA
  2. TIZANIDINE. [Concomitant]
     Active Substance: TIZANIDINE
     Indication: PRODUCT USED FOR UNKNOWN INDICATION
     Dosage: START DATE: BEFORE DUODOPA
  3. DUODOPA [Suspect]
     Active Substance: CARBIDOPA\LEVODOPA
     Indication: PARKINSON^S DISEASE
     Dosage: 20 MG + 5 MG,MD:9.0CC; MAINTENANCE:1.0CC
     Route: 050
     Dates: start: 20201210, end: 20201211
  4. DUODOPA [Suspect]
     Active Substance: CARBIDOPA\LEVODOPA
     Dosage: 20 MG + 5 MG, MD:5.0CC; MAINTENANCE:3.6CC, ED 3.0CC
     Route: 050
     Dates: start: 20201222
  5. TRAZODONE [Concomitant]
     Active Substance: TRAZODONE HYDROCHLORIDE
     Indication: PRODUCT USED FOR UNKNOWN INDICATION
     Dosage: START DATE: BEFORE DUODOPA
  6. DUODOPA [Suspect]
     Active Substance: CARBIDOPA\LEVODOPA
     Dosage: 20 MG + 5 MG
     Route: 050
     Dates: start: 20201211, end: 202012
  7. DUODOPA [Suspect]
     Active Substance: CARBIDOPA\LEVODOPA
     Dosage: 20 MG + 5 MG,MD:5.0CC; MAINTENANCE:2.8CC,ED 3.0CC
     Route: 050
     Dates: start: 202012, end: 20201221
  8. DUODOPA [Suspect]
     Active Substance: CARBIDOPA\LEVODOPA
     Dosage: 20 MG + 5 MG,MD:5.0CC; MAINTENANCE:3.2CC, ED 3.0CC
     Route: 050
     Dates: start: 20201221, end: 20201222
  9. ARTANE [Concomitant]
     Active Substance: TRIHEXYPHENIDYL HYDROCHLORIDE
     Indication: PRODUCT USED FOR UNKNOWN INDICATION
     Dosage: START DATE: BEFORE DUODOPA

REACTIONS (2)
  - Fall [Recovered/Resolved]
  - Wound [Recovering/Resolving]

NARRATIVE: CASE EVENT DATE: 202012
